FAERS Safety Report 7912233-8 (Version None)
Quarter: 2011Q4

REPORT INFORMATION
  Report Type: 
  Country: None (occurrence: None)
  Receive Date: 20111114
  Receipt Date: 20111109
  Transmission Date: 20120403
  Serious: Yes (Hospitalization)
  Sender: FDA-Public Use
  Company Number: FI-MERCK-1111FIN00006

PATIENT
  Age: 63 Year
  Sex: Male

DRUGS (3)
  1. FOSAMAX PLUS D [Suspect]
     Indication: OSTEOPOROSIS
     Route: 048
     Dates: start: 20000101, end: 20101001
  2. PREDNISOLONE [Concomitant]
     Route: 048
  3. ZOLEDRONIC ACID [Concomitant]
     Route: 041
     Dates: start: 20101001, end: 20101001

REACTIONS (2)
  - FEMUR FRACTURE [None]
  - FALL [None]
